FAERS Safety Report 17881163 (Version 6)
Quarter: 2020Q3

REPORT INFORMATION
  Report Type: Report from Study
  Country: TW (occurrence: TW)
  Receive Date: 20200610
  Receipt Date: 20200828
  Transmission Date: 20201103
  Serious: Yes (Hospitalization)
  Sender: FDA-Public Use
  Company Number: TW-ROCHE-2555021

PATIENT
  Age: 58 Year
  Sex: Female

DRUGS (111)
  1. NAPROXEN. [Concomitant]
     Active Substance: NAPROXEN
     Indication: PAIN PROPHYLAXIS
     Route: 048
     Dates: start: 20200121, end: 20200123
  2. TRIAMCINOLONE [Concomitant]
     Active Substance: TRIAMCINOLONE
     Indication: MOUTH ULCERATION
     Dosage: IN ORABASE
     Route: 061
     Dates: start: 20200120, end: 20200218
  3. LEVOFLOXACIN. [Concomitant]
     Active Substance: LEVOFLOXACIN
     Route: 042
     Dates: start: 20200416, end: 20200420
  4. LIDOCAINE HCL [Concomitant]
     Active Substance: LIDOCAINE HYDROCHLORIDE
     Route: 042
     Dates: start: 20200319, end: 20200408
  5. LIDOCAINE HCL [Concomitant]
     Active Substance: LIDOCAINE HYDROCHLORIDE
     Dates: start: 20200331, end: 20200331
  6. GENTAMICIN. [Concomitant]
     Active Substance: GENTAMICIN
     Indication: PROPHYLAXIS
     Dates: start: 20200222
  7. FENTANYL CITRATE. [Concomitant]
     Active Substance: FENTANYL CITRATE
     Indication: PAIN
     Dosage: PRN (AS NEEDED)
     Route: 048
     Dates: start: 20200223, end: 20200229
  8. FENTANYL CITRATE. [Concomitant]
     Active Substance: FENTANYL CITRATE
     Dosage: PRN (AS NEEDED)
     Route: 048
     Dates: start: 20200229
  9. POTASSIUM CHLORIDE. [Concomitant]
     Active Substance: POTASSIUM CHLORIDE
     Indication: HYPOKALAEMIA
     Route: 042
     Dates: start: 20200224, end: 20200226
  10. ALBUMIN [Concomitant]
     Active Substance: ALBUMIN HUMAN
     Dosage: PRN
     Route: 042
     Dates: start: 20200309, end: 20200312
  11. POTASSIUM GLUCONATE [Concomitant]
     Active Substance: POTASSIUM GLUCONATE
     Indication: HYPOKALAEMIA
     Route: 048
     Dates: start: 20200228, end: 20200302
  12. SPIRONOLACTONE. [Concomitant]
     Active Substance: SPIRONOLACTONE
     Indication: HYPOKALAEMIA
     Route: 048
     Dates: start: 20200307, end: 20200315
  13. LANSOPRAZOLE. [Concomitant]
     Active Substance: LANSOPRAZOLE
     Indication: GASTROINTESTINAL HAEMORRHAGE
     Route: 048
     Dates: start: 20200409
  14. NAB?PACLITAXEL [Suspect]
     Active Substance: PACLITAXEL
     Indication: TRIPLE NEGATIVE BREAST CANCER
     Dosage: ON 18/NOV/2019, RECEIVED THE MOST RECENT DOSE OF NAB?PACLITAXEL (147 MG) PRIOR TO AE ONSET.
     Route: 042
     Dates: start: 20190826
  15. APREPITANT. [Concomitant]
     Active Substance: APREPITANT
     Indication: NAUSEA
     Route: 048
     Dates: start: 20200204, end: 20200205
  16. PALONOSETRON. [Concomitant]
     Active Substance: PALONOSETRON HYDROCHLORIDE
     Indication: PROPHYLAXIS
     Route: 042
     Dates: start: 20200120, end: 20200120
  17. MEGESTROL [Concomitant]
     Active Substance: MEGESTROL
     Indication: DECREASED APPETITE
     Route: 048
     Dates: start: 20200220, end: 20200221
  18. POTASSIUM GLUCONATE [Concomitant]
     Active Substance: POTASSIUM GLUCONATE
     Route: 048
     Dates: start: 20200420, end: 20200424
  19. KCL [Concomitant]
     Active Substance: POTASSIUM CHLORIDE
     Dates: start: 20200401, end: 20200402
  20. NITROFURAZONE [Concomitant]
     Active Substance: NITROFURAZONE
     Indication: PROPHYLAXIS
     Dosage: GAUZE
     Dates: start: 20200222
  21. FUROSEMIDE. [Concomitant]
     Active Substance: FUROSEMIDE
     Dosage: PRN (AS NEEDED)
     Route: 042
     Dates: start: 20200306, end: 20200306
  22. DOXORUBICIN [Suspect]
     Active Substance: DOXORUBICIN
     Indication: TRIPLE NEGATIVE BREAST CANCER
     Dosage: ON 03/FEB/2020 RECEIVED THE MOST RECENT DOSE OF DOXORUBICIN (86 MG) PRIOR TO EVENT ONSET.
     Route: 042
     Dates: start: 20191223
  23. HEPARIN LOCK FLUSH [Concomitant]
     Active Substance: HEPARIN SODIUM
     Indication: PROPHYLAXIS
     Dosage: 50 UNITS
     Route: 042
     Dates: start: 20190822
  24. PREDNISOLONE. [Concomitant]
     Active Substance: PREDNISOLONE
     Indication: PROPHYLAXIS
     Route: 048
     Dates: start: 20200203
  25. NAPROXEN. [Concomitant]
     Active Substance: NAPROXEN
     Route: 048
     Dates: start: 20200205, end: 20200207
  26. PROCHLORPERAZINE. [Concomitant]
     Active Substance: PROCHLORPERAZINE
     Route: 030
     Dates: start: 20200220, end: 20200221
  27. LIDOCAINE HCL [Concomitant]
     Active Substance: LIDOCAINE HYDROCHLORIDE
     Dates: start: 20200221, end: 20200222
  28. LIDOCAINE HCL [Concomitant]
     Active Substance: LIDOCAINE HYDROCHLORIDE
     Dates: start: 20200316, end: 20200316
  29. LIDOCAINE HCL [Concomitant]
     Active Substance: LIDOCAINE HYDROCHLORIDE
     Dates: start: 20200403
  30. TETRASTARCH [Concomitant]
     Indication: HYPOTENSION
     Route: 042
     Dates: start: 20200223, end: 20200223
  31. ANIDULAFUNGIN [Concomitant]
     Active Substance: ANIDULAFUNGIN
     Dates: start: 20200330, end: 20200406
  32. FUROSEMIDE. [Concomitant]
     Active Substance: FUROSEMIDE
     Dosage: PRN (AS NEEDED)
     Route: 042
     Dates: start: 20200307, end: 20200312
  33. COTRIMOXAZOLE [Concomitant]
     Active Substance: SULFAMETHOXAZOLE\TRIMETHOPRIM
     Indication: PNEUMOCYSTIS JIROVECII PNEUMONIA
     Route: 042
     Dates: start: 20200227
  34. POTASSIUM GLUCONATE [Concomitant]
     Active Substance: POTASSIUM GLUCONATE
     Route: 048
     Dates: start: 20200226, end: 20200227
  35. POTASSIUM GLUCONATE [Concomitant]
     Active Substance: POTASSIUM GLUCONATE
     Route: 048
     Dates: start: 20200414, end: 20200415
  36. NEOMYCIN;TYROTHRICIN [Concomitant]
     Indication: DERMATITIS DIAPER
     Route: 061
     Dates: start: 20200331
  37. ATEZOLIZUMAB. [Suspect]
     Active Substance: ATEZOLIZUMAB
     Indication: TRIPLE NEGATIVE BREAST CANCER
     Dosage: DATE OF MOST RECENT DOSE OF ATEZOLIZUMAB PRIOR TO AE ONSET: 03/FEB/2020
     Route: 042
     Dates: start: 20190826
  38. SILYMARIN [Concomitant]
     Active Substance: DIETARY SUPPLEMENT\HERBALS\MILK THISTLE
     Indication: ALANINE AMINOTRANSFERASE INCREASED
     Route: 048
     Dates: start: 20191025
  39. GRANISETRON [Concomitant]
     Active Substance: GRANISETRON
     Indication: VOMITING
  40. POTASSIUM GLUCONATE [Concomitant]
     Active Substance: POTASSIUM GLUCONATE
     Route: 048
     Dates: start: 20200316, end: 20200329
  41. POTASSIUM GLUCONATE [Concomitant]
     Active Substance: POTASSIUM GLUCONATE
     Route: 048
     Dates: start: 20200502, end: 20200503
  42. MIDAZOLAM. [Concomitant]
     Active Substance: MIDAZOLAM
     Route: 042
     Dates: start: 20200221
  43. LIDOCAINE HCL [Concomitant]
     Active Substance: LIDOCAINE HYDROCHLORIDE
     Indication: PROPHYLAXIS
     Dates: start: 20200221, end: 20200221
  44. KCL [Concomitant]
     Active Substance: POTASSIUM CHLORIDE
     Indication: HYPOKALAEMIA
     Route: 042
     Dates: start: 20200221, end: 20200224
  45. KCL [Concomitant]
     Active Substance: POTASSIUM CHLORIDE
     Dates: start: 20200413
  46. OSELTAMIVIR [Concomitant]
     Active Substance: OSELTAMIVIR
     Indication: PYREXIA
     Route: 048
     Dates: start: 20200223, end: 20200228
  47. POTASSIUM CHLORIDE. [Concomitant]
     Active Substance: POTASSIUM CHLORIDE
     Route: 042
     Dates: start: 20200420, end: 20200420
  48. ALBUMIN [Concomitant]
     Active Substance: ALBUMIN HUMAN
     Route: 042
     Dates: start: 20200317, end: 20200322
  49. ESOMEPRAZOLE. [Concomitant]
     Active Substance: ESOMEPRAZOLE MAGNESIUM
     Route: 042
     Dates: start: 20200311, end: 20200318
  50. ACTRAPID [Concomitant]
     Active Substance: INSULIN HUMAN
     Dosage: 5 UNIT
     Route: 058
     Dates: start: 20200330, end: 20200413
  51. RABEPRAZOLE [Concomitant]
     Active Substance: RABEPRAZOLE
     Indication: ABDOMINAL PAIN UPPER
     Route: 048
     Dates: start: 20190902
  52. GRANISETRON [Concomitant]
     Active Substance: GRANISETRON
     Indication: PROPHYLAXIS
     Route: 062
     Dates: start: 20200119, end: 20200125
  53. SMOFKABIVEN [Concomitant]
     Active Substance: AMINO ACIDS\DEXTROSE\ELECTROLYTES NOS\SOYBEAN OIL
     Indication: DECREASED APPETITE
     Route: 042
     Dates: start: 20200221, end: 20200221
  54. POTASSIUM GLUCONATE [Concomitant]
     Active Substance: POTASSIUM GLUCONATE
     Dates: start: 20200401, end: 20200408
  55. MIDAZOLAM. [Concomitant]
     Active Substance: MIDAZOLAM
     Indication: MOUTH ULCERATION
     Route: 042
     Dates: start: 20200221, end: 20200221
  56. LIDOCAINE HCL [Concomitant]
     Active Substance: LIDOCAINE HYDROCHLORIDE
     Dates: start: 20200302, end: 20200302
  57. CISATRACURIUM. [Concomitant]
     Active Substance: CISATRACURIUM
     Indication: PROPHYLAXIS
     Dosage: 10 OTHER
     Route: 042
     Dates: start: 20200222
  58. NOREPINEPHRINE. [Concomitant]
     Active Substance: NOREPINEPHRINE
     Indication: HYPOTENSION
     Route: 042
     Dates: start: 20200222, end: 20200229
  59. ESOMEPRAZOLE. [Concomitant]
     Active Substance: ESOMEPRAZOLE MAGNESIUM
     Indication: PROPHYLAXIS
     Route: 042
     Dates: start: 20200227
  60. ZINC OXIDE. [Concomitant]
     Active Substance: ZINC OXIDE
     Indication: DERMATITIS DIAPER
     Dosage: 28.4 (OTHER)
     Route: 061
     Dates: start: 20200309, end: 20200312
  61. FUROSEMIDE. [Concomitant]
     Active Substance: FUROSEMIDE
     Route: 042
     Dates: start: 20200315, end: 20200315
  62. CYCLOPHOSPHAMIDE. [Suspect]
     Active Substance: CYCLOPHOSPHAMIDE
     Indication: TRIPLE NEGATIVE BREAST CANCER
     Dosage: ON 03/FEB/2020, RECEIVED THE MOST RECENT DOSE OF CYCLOPHOSPHAMIDE (858 MG) PRIOR TO EVENT ONSRT.
     Route: 042
     Dates: start: 20191223
  63. LORAZEPAM. [Concomitant]
     Active Substance: LORAZEPAM
     Indication: INSOMNIA
     Route: 048
     Dates: start: 20190923
  64. PREDNISOLONE. [Concomitant]
     Active Substance: PREDNISOLONE
     Indication: ALANINE AMINOTRANSFERASE INCREASED
     Route: 048
     Dates: start: 20191202, end: 20191202
  65. APREPITANT. [Concomitant]
     Active Substance: APREPITANT
     Indication: PROPHYLAXIS OF NAUSEA AND VOMITING
     Route: 048
     Dates: start: 20200121, end: 20200122
  66. DEXAMETHASONE PHOSPHATE [Concomitant]
     Active Substance: DEXAMETHASONE PHOSPHATE
     Route: 042
     Dates: start: 20200203, end: 20200203
  67. TRIAMCINOLONE [Concomitant]
     Active Substance: TRIAMCINOLONE
     Dosage: IN ORABASE
     Route: 061
     Dates: start: 20200222, end: 20200222
  68. PALONOSETRON. [Concomitant]
     Active Substance: PALONOSETRON HYDROCHLORIDE
     Indication: PROPHYLAXIS OF NAUSEA AND VOMITING
     Dosage: 03 FEB 2020
     Route: 042
     Dates: start: 20200203, end: 20200203
  69. POTASSIUM GLUCONATE [Concomitant]
     Active Substance: POTASSIUM GLUCONATE
     Indication: HYPOKALAEMIA
     Route: 048
     Dates: start: 20200221, end: 20200221
  70. LEVOFLOXACIN. [Concomitant]
     Active Substance: LEVOFLOXACIN
     Indication: PNEUMONITIS
     Route: 042
     Dates: start: 20200221
  71. ALBUMIN [Concomitant]
     Active Substance: ALBUMIN HUMAN
     Indication: HYPOALBUMINAEMIA
     Dates: start: 20200224, end: 20200227
  72. FUROSEMIDE. [Concomitant]
     Active Substance: FUROSEMIDE
     Indication: PULMONARY OEDEMA
     Route: 042
     Dates: start: 20200224, end: 20200224
  73. FUROSEMIDE. [Concomitant]
     Active Substance: FUROSEMIDE
     Route: 042
     Dates: start: 20200226, end: 20200229
  74. POTASSIUM GLUCONATE [Concomitant]
     Active Substance: POTASSIUM GLUCONATE
     Indication: HYPOKALAEMIA
     Route: 048
     Dates: start: 20200316, end: 20200329
  75. METOCLOPRAMIDE. [Concomitant]
     Active Substance: METOCLOPRAMIDE
     Indication: PROPHYLAXIS
     Route: 048
     Dates: start: 20200106
  76. GRANISETRON [Concomitant]
     Active Substance: GRANISETRON
     Indication: NAUSEA
     Route: 062
     Dates: start: 20200202, end: 20200208
  77. METHOCARBAMOL. [Concomitant]
     Active Substance: METHOCARBAMOL
     Indication: BACK PAIN
     Route: 048
     Dates: start: 20200120, end: 20200202
  78. ACYCLOVIR. [Concomitant]
     Active Substance: ACYCLOVIR
     Indication: HERPES VIRUS INFECTION
     Route: 061
     Dates: start: 20200203
  79. ROCURONIUM [Concomitant]
     Active Substance: ROCURONIUM BROMIDE
     Indication: PROPHYLAXIS
     Route: 042
     Dates: start: 20200221, end: 20200221
  80. KCL [Concomitant]
     Active Substance: POTASSIUM CHLORIDE
     Dates: start: 20200406, end: 20200406
  81. ANIDULAFUNGIN [Concomitant]
     Active Substance: ANIDULAFUNGIN
     Indication: PYREXIA
     Route: 042
     Dates: start: 20200223, end: 20200223
  82. ALBUMIN [Concomitant]
     Active Substance: ALBUMIN HUMAN
     Route: 042
     Dates: start: 20200414, end: 20200415
  83. ALBUMIN [Concomitant]
     Active Substance: ALBUMIN HUMAN
     Route: 042
     Dates: start: 20200424, end: 20200425
  84. FUROSEMIDE. [Concomitant]
     Active Substance: FUROSEMIDE
     Route: 042
     Dates: start: 20200316, end: 20200322
  85. POTASSIUM GLUCONATE [Concomitant]
     Active Substance: POTASSIUM GLUCONATE
     Route: 048
     Dates: start: 20200311, end: 20200315
  86. PANTOPRAZOLE [Concomitant]
     Active Substance: PANTOPRAZOLE
     Route: 042
     Dates: start: 20200319
  87. ACTRAPID [Concomitant]
     Active Substance: INSULIN HUMAN
     Indication: HYPERGLYCAEMIA
     Dosage: 10 UNIT
     Route: 058
     Dates: start: 20200327, end: 20200330
  88. ACTRAPID [Concomitant]
     Active Substance: INSULIN HUMAN
     Dosage: 4 UNIT
     Route: 058
     Dates: start: 20200414, end: 20200507
  89. URSODEOXYCHOLIC ACID [Concomitant]
     Active Substance: URSODIOL
     Route: 048
     Dates: start: 20200421, end: 20200507
  90. CODEINE [Concomitant]
     Active Substance: CODEINE
     Indication: PAIN PROPHYLAXIS
     Dosage: PRN AS NEEDED
     Route: 030
     Dates: start: 20200501, end: 20200501
  91. BALANCED SALT SOLUTION [Concomitant]
     Active Substance: CALCIUM CHLORIDE\MAGNESIUM CHLORIDE\POTASSIUM CHLORIDE\SODIUM ACETATE\SODIUM CHLORIDE\SODIUM CITRATE
     Indication: EYE SWELLING
     Dates: start: 20200311, end: 20200408
  92. BALANCED SALT SOLUTION [Concomitant]
     Active Substance: CALCIUM CHLORIDE\MAGNESIUM CHLORIDE\POTASSIUM CHLORIDE\SODIUM ACETATE\SODIUM CHLORIDE\SODIUM CITRATE
     Indication: ERYTHEMA
  93. SILYMARIN [Concomitant]
     Active Substance: DIETARY SUPPLEMENT\HERBALS\MILK THISTLE
     Indication: ASPARTATE AMINOTRANSFERASE INCREASED
     Route: 048
     Dates: start: 20200414, end: 20200421
  94. APREPITANT. [Concomitant]
     Active Substance: APREPITANT
     Indication: PROPHYLAXIS
     Route: 048
     Dates: start: 20200120, end: 20200120
  95. APREPITANT. [Concomitant]
     Active Substance: APREPITANT
     Indication: VOMITING
     Route: 048
     Dates: start: 20200203, end: 20200203
  96. DEXAMETHASONE PHOSPHATE [Concomitant]
     Active Substance: DEXAMETHASONE PHOSPHATE
     Indication: ALLERGY PROPHYLAXIS
     Route: 042
     Dates: start: 20200120, end: 20200120
  97. POTASSIUM GLUCONATE [Concomitant]
     Active Substance: POTASSIUM GLUCONATE
     Route: 048
     Dates: start: 20200226, end: 20200227
  98. POTASSIUM GLUCONATE [Concomitant]
     Active Substance: POTASSIUM GLUCONATE
     Route: 048
     Dates: start: 20200511
  99. MIDAZOLAM. [Concomitant]
     Active Substance: MIDAZOLAM
     Route: 061
     Dates: start: 20200222
  100. LIDOCAINE HCL [Concomitant]
     Active Substance: LIDOCAINE HYDROCHLORIDE
     Dates: start: 20200222, end: 20200222
  101. ANIDULAFUNGIN [Concomitant]
     Active Substance: ANIDULAFUNGIN
     Route: 042
     Dates: start: 20200223
  102. ALBUMIN [Concomitant]
     Active Substance: ALBUMIN HUMAN
     Route: 042
     Dates: start: 20200306, end: 20200308
  103. ALBUMIN [Concomitant]
     Active Substance: ALBUMIN HUMAN
     Route: 042
     Dates: start: 20200330, end: 20200401
  104. FUROSEMIDE. [Concomitant]
     Active Substance: FUROSEMIDE
     Dosage: PRN (AS NEEDED)
     Route: 042
     Dates: start: 20200301, end: 20200301
  105. SPIRONOLACTONE. [Concomitant]
     Active Substance: SPIRONOLACTONE
     Route: 048
     Dates: start: 20200316, end: 20200325
  106. TRANEXAMIC ACID. [Concomitant]
     Active Substance: TRANEXAMIC ACID
     Route: 042
     Dates: start: 20200323, end: 20200325
  107. DIOCTAHEDRAL SMECTITE [Concomitant]
     Active Substance: MONTMORILLONITE
     Indication: DIARRHOEA
     Route: 048
     Dates: start: 20200328, end: 20200330
  108. DIOCTAHEDRAL SMECTITE [Concomitant]
     Active Substance: MONTMORILLONITE
     Dates: start: 20200410
  109. AMIKACIN. [Concomitant]
     Active Substance: AMIKACIN
     Indication: PNEUMONITIS
     Route: 042
     Dates: start: 20200407, end: 20200413
  110. MORPHINE SULFATE. [Concomitant]
     Active Substance: MORPHINE SULFATE
     Route: 048
     Dates: start: 20200409
  111. TOBRADEX [Concomitant]
     Active Substance: DEXAMETHASONE\TOBRAMYCIN
     Indication: CONJUNCTIVAL HAEMORRHAGE
     Dosage: 1
     Dates: start: 20200311, end: 20200408

REACTIONS (7)
  - Anaemia [Recovered/Resolved]
  - Pneumocystis jirovecii pneumonia [Recovered/Resolved]
  - Pneumonitis [Recovered/Resolved]
  - Respiratory failure [Recovered/Resolved]
  - Pyrexia [Recovered/Resolved]
  - Cytomegalovirus hepatitis [Recovered/Resolved]
  - Pneumothorax [Recovered/Resolved]

NARRATIVE: CASE EVENT DATE: 20200219
